FAERS Safety Report 7093257-2 (Version None)
Quarter: 2010Q4

REPORT INFORMATION
  Report Type: 
  Country: None (occurrence: None)
  Receive Date: 20101110
  Receipt Date: 20101104
  Transmission Date: 20110411
  Serious: Yes (Death, Hospitalization)
  Sender: FDA-Public Use
  Company Number: IL-CELGENEUS-082-50794-10110894

PATIENT
  Age: 51 Year
  Sex: Male

DRUGS (1)
  1. VIDAZA [Suspect]
     Route: 058
     Dates: end: 20100801

REACTIONS (2)
  - CEREBROVASCULAR ACCIDENT [None]
  - LUNG NEOPLASM MALIGNANT [None]
